FAERS Safety Report 4650479-5 (Version None)
Quarter: 2005Q2

REPORT INFORMATION
  Report Type: 
  Country: None (occurrence: None)
  Receive Date: 20050502
  Receipt Date: 20050422
  Transmission Date: 20051028
  Serious: Yes (Hospitalization)
  Sender: FDA-Public Use
  Company Number: FR-MERCK-0504FRA00068

PATIENT
  Age: 73 Year
  Sex: Female

DRUGS (4)
  1. ZOCOR [Suspect]
     Route: 048
     Dates: end: 20050320
  2. [THERAPY UNSPECIFIED] [Suspect]
     Route: 048
     Dates: start: 20050307, end: 20050320
  3. GLUCOSAMINE SULFATE [Suspect]
     Route: 048
     Dates: start: 20050307, end: 20050320
  4. RABEPRAZOLE SODIUM [Suspect]
     Route: 048
     Dates: start: 20050307, end: 20050320

REACTIONS (2)
  - RENAL FAILURE ACUTE [None]
  - SHOCK [None]
